FAERS Safety Report 5844369-X (Version None)
Quarter: 2008Q3

REPORT INFORMATION
  Report Type: 
  Country: None (occurrence: None)
  Receive Date: 20080813
  Receipt Date: 20080729
  Transmission Date: 20090109
  Serious: Yes (Hospitalization, Other)
  Sender: FDA-Public Use
  Company Number: IE-GENENTECH-264300

PATIENT

DRUGS (10)
  1. XOLAIR [Suspect]
     Indication: ASPERGILLOSIS
     Dosage: 600 MG, UNK
     Route: 058
     Dates: start: 20080702
  2. XOLAIR [Suspect]
     Indication: CYSTIC FIBROSIS
  3. VENTOLIN [Concomitant]
     Indication: DRUG USE FOR UNKNOWN INDICATION
  4. FLIXOTIDE [Concomitant]
     Indication: DRUG USE FOR UNKNOWN INDICATION
  5. COLISTIN SULFATE [Concomitant]
     Indication: DRUG USE FOR UNKNOWN INDICATION
  6. MULTI-VITAMIN [Concomitant]
     Indication: DRUG USE FOR UNKNOWN INDICATION
  7. CALCICHEW [Concomitant]
     Indication: DRUG USE FOR UNKNOWN INDICATION
  8. FLOXAPEN [Concomitant]
     Indication: DRUG USE FOR UNKNOWN INDICATION
  9. PREDNISOLONE [Concomitant]
     Indication: DRUG USE FOR UNKNOWN INDICATION
  10. VORICONAZOLE [Concomitant]
     Indication: DRUG USE FOR UNKNOWN INDICATION
     Dosage: 10 MG, BID
     Route: 048

REACTIONS (10)
  - ANOREXIA [None]
  - BLOOD PRESSURE DECREASED [None]
  - CONDITION AGGRAVATED [None]
  - CYSTIC FIBROSIS [None]
  - DIZZINESS [None]
  - INFECTION [None]
  - MALAISE [None]
  - OFF LABEL USE [None]
  - PARAESTHESIA [None]
  - TACHYCARDIA [None]
